FAERS Safety Report 6807351-1 (Version None)
Quarter: 2010Q2

REPORT INFORMATION
  Report Type: 
  Country: None (occurrence: None)
  Receive Date: 20100629
  Receipt Date: 20080826
  Transmission Date: 20101027
  Serious: No
  Sender: FDA-Public Use
  Company Number: US-PFIZER INC-2008071398

PATIENT
  Age: 75 Year
  Sex: Male

DRUGS (7)
  1. CARDURA [Suspect]
     Indication: HYPERTENSION
  2. CARDURA [Suspect]
     Indication: PROSTATIC DISORDER
  3. VITAMINS [Suspect]
     Indication: VITAMIN SUPPLEMENTATION
     Route: 048
     Dates: start: 20070501
  4. MULTI-VITAMINS [Concomitant]
  5. GLUCOSAMINE [Concomitant]
  6. ATENOLOL [Concomitant]
     Indication: HYPERTENSION
  7. ALL OTHER THERAPEUTIC PRODUCTS [Concomitant]
     Indication: PROSTATIC DISORDER

REACTIONS (2)
  - VISION BLURRED [None]
  - VISUAL IMPAIRMENT [None]
